FAERS Safety Report 24590087 (Version 1)
Quarter: 2024Q4

REPORT INFORMATION
  Report Type: Spontaneous
  Country: NL (occurrence: NL)
  Receive Date: 20241107
  Receipt Date: 20241107
  Transmission Date: 20250114
  Serious: Yes (Other)
  Sender: MERZ
  Company Number: NL-Merz Pharmaceuticals GmbH-2024100000265

PATIENT

DRUGS (1)
  1. BOTULINUM TOXIN TYPE A [Suspect]
     Active Substance: BOTULINUM TOXIN TYPE A
     Indication: Hernia repair

REACTIONS (2)
  - Cardio-respiratory distress [Unknown]
  - Off label use [Unknown]
